FAERS Safety Report 14126688 (Version 1)
Quarter: 2017Q4

REPORT INFORMATION
  Report Type: Spontaneous
  Country: ES (occurrence: ES)
  Receive Date: 20171025
  Receipt Date: 20171025
  Transmission Date: 20180321
  Serious: Yes (Hospitalization, Other)
  Sender: FDA-Public Use
  Company Number: ES-IPSEN BIOPHARMACEUTICALS, INC.-2017-12300

PATIENT
  Age: 77 Year
  Sex: Male

DRUGS (7)
  1. KEPPRA [Concomitant]
     Active Substance: LEVETIRACETAM
     Indication: SEIZURE
     Route: 048
     Dates: start: 20100908
  2. RANITIDINE. [Concomitant]
     Active Substance: RANITIDINE
     Route: 048
     Dates: start: 20100503
  3. CLOPIDOGREL [Concomitant]
     Active Substance: CLOPIDOGREL BISULFATE
     Indication: CEREBROVASCULAR ACCIDENT
     Route: 048
     Dates: start: 20100503
  4. ENALAPRIL [Concomitant]
     Active Substance: ENALAPRIL
  5. DYSPORT [Suspect]
     Active Substance: ABOBOTULINUMTOXINA
     Indication: HEMIPARESIS
     Dosage: 1000 UNITS
     Route: 030
     Dates: start: 20101212, end: 20101212
  6. PARACETAMOL [Concomitant]
     Active Substance: ACETAMINOPHEN
  7. DYSPORT [Suspect]
     Active Substance: ABOBOTULINUMTOXINA
     Dosage: 1000 UNITS
     Route: 030
     Dates: start: 20170219, end: 20170219

REACTIONS (7)
  - Peripheral ischaemia [Recovered/Resolved]
  - Acute pulmonary oedema [Unknown]
  - Aneurysm [Unknown]
  - Fluid overload [Unknown]
  - Depression [Unknown]
  - Rhabdomyolysis [Unknown]
  - Thrombosis [Unknown]

NARRATIVE: CASE EVENT DATE: 20131003
